FAERS Safety Report 6151542-2 (Version None)
Quarter: 2009Q2

REPORT INFORMATION
  Report Type: 
  Country: None (occurrence: None)
  Receive Date: 20090410
  Receipt Date: 20090331
  Transmission Date: 20091009
  Serious: Yes (Hospitalization, Other)
  Sender: FDA-Public Use
  Company Number: US-ROCHE-600627

PATIENT
  Sex: Male

DRUGS (20)
  1. RIBAVIRIN [Suspect]
     Indication: HEPATITIS C
     Dosage: THERAPY SUSPENDED INDEFINATELY AT WEEK 18
     Route: 065
  2. PEG-INTERFERON A-2A (RO 25-8310) [Suspect]
     Indication: HEPATITIS C
     Dosage: FORM: VIAL, PRE FILLED SYRINGES
     Route: 065
     Dates: start: 20081112
  3. PEG-INTERFERON A-2A (RO 25-8310) [Suspect]
     Route: 065
     Dates: start: 20090106
  4. PEG-INTERFERON A-2A (RO 25-8310) [Suspect]
     Route: 065
     Dates: start: 20090126
  5. PEG-INTERFERON A-2A (RO 25-8310) [Suspect]
     Dosage: THERAPY SUSPENDED INDEFINATELY AT WEEK 18
     Route: 065
     Dates: start: 20090223
  6. RIBAVIRIN [Suspect]
     Route: 065
     Dates: start: 20081112
  7. PREVACID [Concomitant]
  8. ALLEGRA [Concomitant]
  9. SPIRIVA [Concomitant]
  10. ALBUTEROL [Concomitant]
  11. SINGULAIR [Concomitant]
  12. FLONASE [Concomitant]
  13. ADVAIR HFA [Concomitant]
  14. SYNTHROID [Concomitant]
  15. WELLBUTRIN [Concomitant]
  16. EFFEXOR [Concomitant]
  17. TRAZODONE HCL [Concomitant]
  18. VISTARIL [Concomitant]
  19. ASACOL [Concomitant]
  20. SUBOXONE [Concomitant]

REACTIONS (22)
  - ABDOMINAL PAIN [None]
  - ABSCESS OF EXTERNAL AUDITORY MEATUS [None]
  - ALANINE AMINOTRANSFERASE DECREASED [None]
  - ANGER [None]
  - ANOREXIA [None]
  - CHOLECYSTECTOMY [None]
  - DYSPEPSIA [None]
  - DYSPHAGIA [None]
  - DYSPNOEA [None]
  - FATIGUE [None]
  - HOT FLUSH [None]
  - HYPERSOMNIA [None]
  - INFLUENZA LIKE ILLNESS [None]
  - MEMORY IMPAIRMENT [None]
  - NAUSEA [None]
  - PRODUCTIVE COUGH [None]
  - RASH [None]
  - STAPHYLOCOCCAL INFECTION [None]
  - UPPER RESPIRATORY TRACT INFECTION [None]
  - VOMITING [None]
  - WEIGHT DECREASED [None]
  - WHITE BLOOD CELL COUNT DECREASED [None]
